FAERS Safety Report 13752991 (Version 1)
Quarter: 2017Q3

REPORT INFORMATION
  Report Type: Spontaneous
  Country: None (occurrence: US)
  Receive Date: 20170713
  Receipt Date: 20170713
  Transmission Date: 20171127
  Serious: Yes (Other)
  Sender: FDA-Public Use
  Company Number: None

PATIENT
  Age: 63 Year
  Sex: Male

DRUGS (1)
  1. CEFAZOLIN 1 GM SAGENT [Suspect]
     Active Substance: CEFAZOLIN
     Indication: ENDOCARDITIS
     Route: 042
     Dates: start: 20170604, end: 20170709

REACTIONS (3)
  - Rash generalised [None]
  - Erythema [None]
  - Hypersensitivity [None]

NARRATIVE: CASE EVENT DATE: 20170709
